FAERS Safety Report 6869943-3 (Version None)
Quarter: 2010Q3

REPORT INFORMATION
  Report Type: 
  Country: None (occurrence: None)
  Receive Date: 20100722
  Receipt Date: 20080908
  Transmission Date: 20110219
  Serious: No
  Sender: FDA-Public Use
  Company Number: US-PFIZER INC-2008075798

PATIENT
  Sex: Male
  Weight: 79.38 kg

DRUGS (3)
  1. CHANTIX [Suspect]
     Indication: SMOKING CESSATION THERAPY
     Dates: start: 20080801, end: 20080822
  2. LISINOPRIL [Suspect]
     Dates: start: 20030101, end: 20080901
  3. CRESTOR [Concomitant]

REACTIONS (1)
  - DIZZINESS [None]
